FAERS Safety Report 5177395-7 (Version None)
Quarter: 2006Q4

REPORT INFORMATION
  Report Type: 
  Country: None (occurrence: None)
  Receive Date: 20061207
  Receipt Date: 20061127
  Transmission Date: 20070319
  Serious: Yes (Other)
  Sender: FDA-Public Use
  Company Number: 2006148304

PATIENT
  Age: 4 Year
  Sex: Female

DRUGS (2)
  1. AZITHROMYCIN [Suspect]
     Indication: PYREXIA
     Dosage: 150 MG, ORAL
     Route: 048
     Dates: start: 20061121
  2. CLARITHROMYCIN [Concomitant]

REACTIONS (1)
  - HALLUCINATION [None]
